FAERS Safety Report 14658240 (Version 1)
Quarter: 2018Q1

REPORT INFORMATION
  Report Type: Spontaneous
  Country: IT (occurrence: IT)
  Receive Date: 20180320
  Receipt Date: 20180320
  Transmission Date: 20180509
  Serious: Yes (Other)
  Sender: FDA-Public Use
  Company Number: IT-AUROBINDO-AUR-APL-2018-004948

PATIENT
  Age: 18 Year
  Sex: Female

DRUGS (2)
  1. CARBOLITHIUM [Suspect]
     Active Substance: LITHIUM CARBONATE
     Indication: MEDICATION ERROR
     Dosage: IN TOTAL
     Route: 048
     Dates: start: 20171128, end: 20171128
  2. LORAZEPAM. [Suspect]
     Active Substance: LORAZEPAM
     Indication: DRUG ABUSE
     Dosage: IN TOTAL
     Route: 048
     Dates: start: 20171128, end: 20171128

REACTIONS (2)
  - Drug abuse [Recovering/Resolving]
  - Medication error [Recovering/Resolving]

NARRATIVE: CASE EVENT DATE: 20171128
